FAERS Safety Report 11501945 (Version 3)
Quarter: 2015Q3

REPORT INFORMATION
  Report Type: Report from Study
  Country: IT (occurrence: IT)
  Receive Date: 20150914
  Receipt Date: 20150924
  Transmission Date: 20151125
  Serious: Yes (Other)
  Sender: FDA-Public Use
  Company Number: IT-TEVA-592572ISR

PATIENT
  Age: 46 Year
  Sex: Male

DRUGS (15)
  1. LONQUEX [Suspect]
     Active Substance: LIPEGFILGRASTIM
     Dosage: 6 MILLIGRAM DAILY;
     Route: 058
     Dates: start: 20150729, end: 20150729
  2. LONQUEX [Suspect]
     Active Substance: LIPEGFILGRASTIM
     Dosage: 6 MILLIGRAM DAILY;
     Route: 058
     Dates: start: 20150713, end: 20150713
  3. VINCRISTINA [Suspect]
     Active Substance: VINCRISTINE
     Dosage: 2 MILLIGRAM DAILY;
     Route: 042
     Dates: start: 20150727, end: 20150727
  4. VINCRISTINA [Suspect]
     Active Substance: VINCRISTINE
     Indication: CHEMOTHERAPY
     Dosage: 2 MILLIGRAM DAILY;
     Route: 042
     Dates: start: 20150810, end: 20150810
  5. LONQUEX [Suspect]
     Active Substance: LIPEGFILGRASTIM
     Indication: PROPHYLAXIS
     Dosage: 6 MILLIGRAM DAILY;
     Route: 058
     Dates: start: 20150811, end: 20150811
  6. EPIRUBICINA [Suspect]
     Active Substance: ACLARUBICIN
     Dosage: 180 MILLIGRAM DAILY;
     Route: 042
     Dates: start: 20150711, end: 20150711
  7. VINCRISTINA [Suspect]
     Active Substance: VINCRISTINE
     Dosage: 2 MILLIGRAM DAILY;
     Route: 042
     Dates: start: 20150711, end: 20150711
  8. PREDNISONE. [Concomitant]
     Active Substance: PREDNISONE
     Indication: CHEMOTHERAPY
     Dates: start: 20150810, end: 20150814
  9. EPIRUBICINA [Suspect]
     Active Substance: ACLARUBICIN
     Indication: CHEMOTHERAPY
     Dosage: 180 MILLIGRAM DAILY;
     Route: 042
     Dates: start: 20150810, end: 20150810
  10. OMEPRAZOLO [Concomitant]
     Active Substance: OMEPRAZOLE
     Indication: ANTIEMETIC SUPPORTIVE CARE
     Dosage: 20 MILLIGRAM DAILY;
     Route: 048
     Dates: start: 20150813
  11. EPIRUBICINA [Suspect]
     Active Substance: ACLARUBICIN
     Dosage: 180 MILLIGRAM DAILY;
     Route: 042
     Dates: start: 20150727, end: 20150727
  12. CICLOFOSFAMIDE [Suspect]
     Active Substance: CYCLOPHOSPHAMIDE
     Indication: CHEMOTHERAPY
     Dosage: 2000 MILLIGRAM DAILY;
     Route: 042
     Dates: start: 20150810, end: 20150810
  13. CICLOFOSFAMIDE [Suspect]
     Active Substance: CYCLOPHOSPHAMIDE
     Dosage: 2000 MILLIGRAM DAILY;
     Route: 042
     Dates: start: 20150727, end: 20150727
  14. CICLOFOSFAMIDE [Suspect]
     Active Substance: CYCLOPHOSPHAMIDE
     Dosage: 2000 MILLIGRAM DAILY;
     Route: 042
     Dates: start: 20150711, end: 20150711
  15. ALLOPURINOLO [Concomitant]
     Active Substance: ALLOPURINOL
     Indication: BLOOD URIC ACID
     Dosage: 300 MILLIGRAM DAILY;
     Route: 048
     Dates: start: 20150813

REACTIONS (1)
  - Neutropenia [Recovered/Resolved with Sequelae]

NARRATIVE: CASE EVENT DATE: 20150819
